FAERS Safety Report 6987566-2 (Version None)
Quarter: 2010Q3

REPORT INFORMATION
  Report Type: 
  Country: None (occurrence: None)
  Receive Date: 20100916
  Receipt Date: 20100908
  Transmission Date: 20110219
  Serious: No
  Sender: FDA-Public Use
  Company Number: US-PFIZER INC-2010114414

PATIENT
  Sex: Female

DRUGS (3)
  1. TOVIAZ [Suspect]
     Indication: HYPERTONIC BLADDER
     Dosage: 4 MG, 1X/DAY
     Route: 048
     Dates: start: 20100901
  2. PRILOSEC [Interacting]
     Dosage: UNK
     Route: 048
  3. VALSARTAN [Concomitant]
     Dosage: UNK
     Route: 048

REACTIONS (2)
  - DIARRHOEA [None]
  - DRUG INTERACTION [None]
